FAERS Safety Report 5385390-8 (Version None)
Quarter: 2007Q3

REPORT INFORMATION
  Report Type: 
  Country: None (occurrence: None)
  Receive Date: 20070712
  Receipt Date: 20070704
  Transmission Date: 20080115
  Serious: Yes (Other)
  Sender: FDA-Public Use
  Company Number: JP-ROCHE-492197

PATIENT
  Age: 30 Year
  Sex: Male

DRUGS (4)
  1. TAMIFLU [Suspect]
     Route: 048
     Dates: start: 20070328, end: 20070328
  2. TAMIFLU [Suspect]
     Route: 048
     Dates: start: 20070329, end: 20070331
  3. TAMIFLU [Suspect]
     Route: 048
     Dates: start: 20070401, end: 20070401
  4. AMOXICILLIN TRIHYDRATE [Concomitant]
     Route: 048
     Dates: start: 20070328, end: 20070331

REACTIONS (1)
  - ABNORMAL BEHAVIOUR [None]
